FAERS Safety Report 5369229-2 (Version None)
Quarter: 2007Q2

REPORT INFORMATION
  Report Type: 
  Country: None (occurrence: None)
  Receive Date: 20070625
  Receipt Date: 20070619
  Transmission Date: 20071010
  Serious: No
  Sender: FDA-Public Use
  Company Number: BE-ELI_LILLY_AND_COMPANY-BE200608004201

PATIENT
  Age: 34 Year
  Sex: Female

DRUGS (3)
  1. ZYPREXA [Suspect]
     Indication: SCHIZOPHRENIA
     Dosage: 10 MG,  EVERY THREE DAYS
     Route: 048
     Dates: start: 20060706
  2. PROZAC [Suspect]
     Indication: DEPRESSION
     Dosage: 20 MG, UNK
     Route: 048
     Dates: start: 20060301
  3. XANAX                                   /USA/ [Concomitant]
     Indication: PANIC ATTACK
     Dosage: 1 MG, UNK
     Dates: start: 20060201

REACTIONS (5)
  - DRUG EXPOSURE DURING PREGNANCY [None]
  - OESOPHAGITIS [None]
  - RETAINED PLACENTA OR MEMBRANES [None]
  - STREPTOCOCCAL INFECTION [None]
  - THROMBOSIS [None]
